FAERS Safety Report 7404471-8 (Version None)
Quarter: 2011Q2

REPORT INFORMATION
  Report Type: 
  Country: None (occurrence: None)
  Receive Date: 20110408
  Receipt Date: 20110406
  Transmission Date: 20111010
  Serious: Yes (Hospitalization)
  Sender: FDA-Public Use
  Company Number: US-RB-025103-11

PATIENT
  Age: 56 Year
  Sex: Female

DRUGS (1)
  1. SUBOXONE [Suspect]
     Indication: PRODUCT USED FOR UNKNOWN INDICATION
     Dosage: DOSING INFORMATION UNKNOWN
     Route: 065

REACTIONS (8)
  - DYSPNOEA [None]
  - DRUG WITHDRAWAL SYNDROME [None]
  - TREMOR [None]
  - DRUG DEPENDENCE [None]
  - PALPITATIONS [None]
  - MUSCLE SPASMS [None]
  - PANIC ATTACK [None]
  - INSOMNIA [None]
